FAERS Safety Report 8342714 (Version 2)
Quarter: 2013Q2

REPORT INFORMATION
  Report Type: Spontaneous
  Country: US (occurrence: US)
  Receive Date: 20120118
  Receipt Date: 20130507
  Transmission Date: 20140414
  Serious: Yes (Other)
  Sender: FDA-Public Use
  Company Number: US-ROCHE-790246

PATIENT
  Age: 30 Year
  Sex: Female
  Weight: 61.29 kg

DRUGS (2)
  1. ACCUTANE [Suspect]
     Indication: ACNE CYSTIC
     Route: 048
     Dates: start: 200009, end: 200102
  2. ACCUTANE [Suspect]
     Route: 048

REACTIONS (11)
  - Colitis ulcerative [Unknown]
  - Emotional distress [Unknown]
  - Depression [Unknown]
  - Perirectal abscess [Unknown]
  - Irritable bowel syndrome [Unknown]
  - Eczema [Unknown]
  - Dry skin [Unknown]
  - Onychoclasis [Unknown]
  - Erythema [Unknown]
  - Nasal dryness [Unknown]
  - Dry skin [Unknown]
